FAERS Safety Report 9773129 (Version 4)
Quarter: 2014Q1

REPORT INFORMATION
  Report Type: Spontaneous
  Country: JP (occurrence: JP)
  Receive Date: 20131219
  Receipt Date: 20140123
  Transmission Date: 20141002
  Serious: Yes (Life-Threatening, Hospitalization)
  Sender: FDA-Public Use
  Company Number: JP-WATSON-2013-23140

PATIENT
  Age: 66 Year
  Sex: Male

DRUGS (4)
  1. RAPAFLO (WATSON LABORATORIES) [Suspect]
     Indication: BLADDER OUTLET OBSTRUCTION
     Dosage: 8 MG, UNK
     Route: 048
     Dates: start: 20130930, end: 20131001
  2. ASPIRIN [Suspect]
     Indication: PYREXIA
     Dosage: UNK
     Route: 048
     Dates: end: 20131002
  3. WARFARIN [Concomitant]
     Indication: ATRIAL FIBRILLATION
     Dosage: 5 MG
     Route: 048
  4. OLMETEC [Concomitant]
     Indication: HYPERTENSION
     Dosage: 20 MG
     Route: 048

REACTIONS (4)
  - Pneumonia [Recovered/Resolved]
  - Rhabdomyolysis [Recovered/Resolved]
  - Hepatic function abnormal [Recovered/Resolved]
  - Dizziness [Recovered/Resolved]
